FAERS Safety Report 8056355-2 (Version None)
Quarter: 2011Q4

REPORT INFORMATION
  Report Type: 
  Country: None (occurrence: None)
  Receive Date: 20111220
  Receipt Date: 20110916
  Transmission Date: 20120403
  Serious: Yes (Hospitalization)
  Sender: FDA-Public Use
  Company Number: PHEH2011US04562

PATIENT
  Age: 40 Year
  Sex: Female
  Weight: 111 kg

DRUGS (8)
  1. BACTRIM [Concomitant]
  2. LEXAPRO [Concomitant]
  3. ROCALTROL [Concomitant]
  4. CYCLOSPORINE [Suspect]
     Indication: PROPHYLAXIS AGAINST TRANSPLANT REJECTION
     Dosage: 400 MG, DAILY ORAL
     Route: 048
     Dates: start: 20100810
  5. LISINOPRIL [Concomitant]
  6. PREDNISONE TAB [Concomitant]
  7. MYFORTIC [Suspect]
     Dosage: 1440 MG, DAILY ORAL
     Route: 048
     Dates: start: 20100808
  8. ESTRACE [Concomitant]

REACTIONS (5)
  - TACHYCARDIA [None]
  - DIARRHOEA [None]
  - HYPERSENSITIVITY [None]
  - DYSPEPSIA [None]
  - OEDEMA [None]
